FAERS Safety Report 12105762 (Version 1)
Quarter: 2016Q1

REPORT INFORMATION
  Report Type: Spontaneous
  Country: US (occurrence: US)
  Receive Date: 20160223
  Receipt Date: 20160223
  Transmission Date: 20160526
  Serious: No
  Sender: FDA-Public Use
  Company Number: US-MYLANLABS-2015M1000684

PATIENT
  Sex: Female
  Weight: 65.76 kg

DRUGS (1)
  1. HYDROCHLOROTHIAZIDE. [Suspect]
     Active Substance: HYDROCHLOROTHIAZIDE
     Indication: BLOOD PRESSURE MEASUREMENT
     Dosage: UNK MG, UNK
     Route: 048
     Dates: start: 2012, end: 2012

REACTIONS (5)
  - Erythema of eyelid [Recovered/Resolved]
  - Eyelids pruritus [Recovered/Resolved]
  - Eyelid skin dryness [Recovered/Resolved]
  - Eyelid oedema [Recovered/Resolved]
  - Reaction to drug excipients [Recovered/Resolved]

NARRATIVE: CASE EVENT DATE: 2012
